FAERS Safety Report 4827881-1 (Version None)
Quarter: 2005Q4

REPORT INFORMATION
  Report Type: 
  Country: None (occurrence: None)
  Receive Date: 20051110
  Receipt Date: 20051028
  Transmission Date: 20060501
  Serious: Yes (Hospitalization, Other)
  Sender: FDA-Public Use
  Company Number: US_980606150

PATIENT
  Age: 76 Year
  Sex: Male
  Weight: 87 kg

DRUGS (9)
  1. HUMULIN U [Suspect]
     Indication: DIABETES MELLITUS NON-INSULIN-DEPENDENT
     Dosage: 28 U DAY
  2. HUMULIN R [Suspect]
     Indication: DIABETES MELLITUS NON-INSULIN-DEPENDENT
  3. HUMULIN 70/30 [Suspect]
     Indication: DIABETES MELLITUS NON-INSULIN-DEPENDENT
  4. ORUVAIL [Concomitant]
  5. TAGAMET (CIMETIDIEN) [Concomitant]
  6. IMDUR [Concomitant]
  7. ATENOLOL [Concomitant]
  8. LIPITOR (LIPITOR) [Concomitant]
  9. TRENTAL [Concomitant]

REACTIONS (7)
  - CORONARY ARTERY OCCLUSION [None]
  - DEVICE RELATED INFECTION [None]
  - DIABETES MELLITUS INADEQUATE CONTROL [None]
  - DRUG INEFFECTIVE [None]
  - IMPLANTABLE DEFIBRILLATOR INSERTION [None]
  - INCORRECT DOSE ADMINISTERED [None]
  - POOR QUALITY DRUG ADMINISTERED [None]
